FAERS Safety Report 6468171-3 (Version None)
Quarter: 2009Q4

REPORT INFORMATION
  Report Type: 
  Country: None (occurrence: None)
  Receive Date: 20091202
  Receipt Date: 20091119
  Transmission Date: 20100525
  Serious: Yes (Hospitalization)
  Sender: FDA-Public Use
  Company Number: IL-GENENTECH-294983

PATIENT
  Age: 41 Year
  Sex: Female

DRUGS (4)
  1. MABTHERA [Suspect]
     Indication: LYMPHOMA
     Dosage: UNK
     Route: 042
     Dates: start: 20070101
  2. CYCLOPHOSPHAMIDE [Concomitant]
     Indication: LYMPHOMA
     Dosage: UNK
     Dates: start: 20070101
  3. VINCRISTINE [Concomitant]
     Indication: LYMPHOMA
     Dosage: UNK
     Dates: start: 20070101
  4. PREDNISONE [Concomitant]
     Indication: LYMPHOMA
     Dosage: UNK
     Dates: start: 20070101

REACTIONS (3)
  - COMA [None]
  - ENCEPHALITIS [None]
  - HALLUCINATION [None]
